FAERS Safety Report 4747859-6 (Version None)
Quarter: 2005Q3

REPORT INFORMATION
  Report Type: 
  Country: None (occurrence: None)
  Receive Date: 20050817
  Receipt Date: 20050817
  Transmission Date: 20060218
  Serious: Yes (Other)
  Sender: FDA-Public Use
  Company Number: None

PATIENT
  Sex: Male
  Weight: 79.3795 kg

DRUGS (1)
  1. CREST PRO-HEALTH RINSE CREST [Suspect]
     Dosage: 4TSP 2 A DAY DENTAL
     Route: 004
     Dates: start: 20050701, end: 20050816

REACTIONS (1)
  - GINGIVAL ATROPHY [None]
